FAERS Safety Report 10985004 (Version 1)
Quarter: 2015Q2

REPORT INFORMATION
  Report Type: Spontaneous
  Country: FR (occurrence: FR)
  Receive Date: 20150403
  Receipt Date: 20150403
  Transmission Date: 20150821
  Serious: Yes (Other)
  Sender: FDA-Public Use
  Company Number: FR-SA-2015SA011253

PATIENT
  Age: 26 Year
  Sex: Female
  Weight: 59 kg

DRUGS (1)
  1. THYROGEN [Suspect]
     Active Substance: THYROTROPIN ALFA
     Route: 065
     Dates: start: 20150126, end: 20150127

REACTIONS (2)
  - Exposure during pregnancy [Unknown]
  - Abortion induced [Unknown]
